FAERS Safety Report 13398616 (Version 3)
Quarter: 2017Q2

REPORT INFORMATION
  Report Type: Report from Study
  Country: US (occurrence: US)
  Receive Date: 20170403
  Receipt Date: 20170420
  Transmission Date: 20170830
  Serious: Yes (Other)
  Sender: FDA-Public Use
  Company Number: US-GILEAD-2017-0265041

PATIENT
  Age: 70 Year
  Sex: Male

DRUGS (1)
  1. TENOFOVIR DISOPROXIL FUMARATE. [Suspect]
     Active Substance: TENOFOVIR DISOPROXIL FUMARATE
     Indication: HEPATOCELLULAR CARCINOMA
     Dosage: 300 MG, UNK
     Route: 048

REACTIONS (6)
  - Colectomy [Unknown]
  - Spinal operation [Unknown]
  - Off label use [Not Recovered/Not Resolved]
  - Hepatic cancer [Unknown]
  - Bladder cancer [Unknown]
  - Prostate cancer [Unknown]
